FAERS Safety Report 6188946-8 (Version None)
Quarter: 2009Q2

REPORT INFORMATION
  Report Type: 
  Country: None (occurrence: None)
  Receive Date: 20090513
  Receipt Date: 20090505
  Transmission Date: 20091009
  Serious: Yes (Disabling, Other)
  Sender: FDA-Public Use
  Company Number: PHEH2009US03712

PATIENT
  Age: 75 Year
  Sex: Female
  Weight: 85.261 kg

DRUGS (5)
  1. RECLAST [Suspect]
     Indication: OSTEOPOROSIS POSTMENOPAUSAL
     Dosage: 5 MG, ONCE A YEAR
     Dates: start: 20090409, end: 20090409
  2. ACETYLSALICYLIC ACID [Concomitant]
     Dosage: UNK
  3. PLAQUENIL [Concomitant]
     Indication: RHEUMATOID ARTHRITIS
     Dosage: 200 MG, BID
     Route: 048
     Dates: start: 20080118
  4. POTASSIUM CHLORIDE [Concomitant]
     Indication: SUPPLEMENTATION THERAPY
     Dosage: 10 MBQ, QD
     Route: 048
     Dates: start: 20080520
  5. LASIX [Concomitant]
     Indication: OEDEMA
     Dosage: 20 MG, QD
     Route: 048
     Dates: start: 20080520

REACTIONS (4)
  - ARTHRALGIA [None]
  - BONE PAIN [None]
  - PYREXIA [None]
  - RHEUMATOID ARTHRITIS [None]
